FAERS Safety Report 9212879 (Version 1)
Quarter: 2013Q1

REPORT INFORMATION
  Report Type: Spontaneous
  Country: US (occurrence: None)
  Receive Date: 20120824
  Receipt Date: 20120824
  Transmission Date: 20140127
  Serious: Yes (Life-Threatening)
  Sender: FDA-Public Use
  Company Number: A-NJ2011-45822

PATIENT
  Age: 15 Year
  Sex: Female

DRUGS (7)
  1. TRACLEER [Suspect]
     Indication: PULMONARY ARTERIAL HYPERTENSION
     Dosage: UNK , ORAL
     Route: 048
     Dates: start: 2006
  2. VELETRI [Suspect]
     Dosage: 169 NG/KG, PER MIN, IV DRIP
     Route: 041
     Dates: start: 20110228
  3. SILDENAFIL (SILDENAFIL) [Concomitant]
  4. COUMADIN (WARFARIN SODIUM) [Concomitant]
  5. DIGOXIN (DIGOXIN) [Concomitant]
  6. ALDACTONE (SPIRONOLACTONE) [Concomitant]
  7. LASIX (FUROSEMIDE) [Concomitant]

REACTIONS (9)
  - Cough [None]
  - Vomiting [None]
  - Diarrhoea [None]
  - Dizziness [None]
  - Headache [None]
  - Migraine [None]
  - Pain in jaw [None]
  - Flushing [None]
  - Rash [None]
